FAERS Safety Report 17495611 (Version 4)
Quarter: 2020Q3

REPORT INFORMATION
  Report Type: Spontaneous
  Country: US (occurrence: US)
  Receive Date: 20200304
  Receipt Date: 20200707
  Transmission Date: 20201102
  Serious: No
  Sender: FDA-Public Use
  Company Number: US-PFIZER INC-2020091822

PATIENT
  Age: 59 Year
  Sex: Female
  Weight: 116 kg

DRUGS (9)
  1. TRAZODONE [Concomitant]
     Active Substance: TRAZODONE HYDROCHLORIDE
     Indication: SLEEP DISORDER
     Dosage: 300 MG, 1X/DAY (100MG) 3 AT BEDTIME)
     Dates: start: 2012
  2. PREGABALIN. [Suspect]
     Active Substance: PREGABALIN
     Indication: HEADACHE
  3. PREGABALIN. [Suspect]
     Active Substance: PREGABALIN
     Indication: NECK PAIN
  4. BUSPIRONE [Concomitant]
     Active Substance: BUSPIRONE HYDROCHLORIDE
     Indication: ANXIETY
     Dosage: 20 MG, 2?3 TIMES A DAY WITH THE METHYLPHENIDATE
     Dates: start: 2006
  5. PREGABALIN. [Suspect]
     Active Substance: PREGABALIN
     Indication: PAIN
     Dosage: 150 MG, 2X/DAY (150 MG IN MORNING AND AT BEDTIME)
     Dates: start: 202002
  6. METHYLPHENIDATE. [Concomitant]
     Active Substance: METHYLPHENIDATE
     Indication: CRANIOCEREBRAL INJURY
     Dosage: 10 MG, 2?3 TIMES A DAY
     Dates: start: 2006
  7. METHYLPHENIDATE. [Concomitant]
     Active Substance: METHYLPHENIDATE
     Indication: DISTURBANCE IN ATTENTION
  8. BUSPIRONE [Concomitant]
     Active Substance: BUSPIRONE HYDROCHLORIDE
     Indication: CRANIOCEREBRAL INJURY
  9. PREGABALIN. [Suspect]
     Active Substance: PREGABALIN
     Indication: CRANIOCEREBRAL INJURY
     Dosage: 20 MG, 2X/DAY
     Dates: start: 201910, end: 202002

REACTIONS (2)
  - Drug ineffective [Recovered/Resolved]
  - Drug ineffective for unapproved indication [Recovered/Resolved]

NARRATIVE: CASE EVENT DATE: 201910
